FAERS Safety Report 6612881-1 (Version None)
Quarter: 2010Q1

REPORT INFORMATION
  Report Type: 
  Country: None (occurrence: None)
  Receive Date: 20100303
  Receipt Date: 20100223
  Transmission Date: 20100710
  Serious: Yes (Other)
  Sender: FDA-Public Use
  Company Number: CA-AMGEN-KDL394652

PATIENT
  Age: 74 Year
  Sex: Male
  Weight: 55 kg

DRUGS (1)
  1. VECTIBIX [Suspect]
     Indication: DRUG USE FOR UNKNOWN INDICATION
     Route: 042

REACTIONS (5)
  - DYSPHAGIA [None]
  - ORAL PRURITUS [None]
  - OROPHARYNGEAL PLAQUE [None]
  - STOMATITIS [None]
  - SWOLLEN TONGUE [None]
